FAERS Safety Report 25340427 (Version 1)
Quarter: 2025Q2

REPORT INFORMATION
  Report Type: Spontaneous
  Country: TW (occurrence: TW)
  Receive Date: 20250521
  Receipt Date: 20250521
  Transmission Date: 20250717
  Serious: Yes (Other)
  Sender: GLAND PHARMA LTD
  Company Number: TW-GLANDPHARMA-TW-2025GLNLIT01270

PATIENT
  Age: 10 Year
  Sex: Male

DRUGS (2)
  1. CISPLATIN [Suspect]
     Active Substance: CISPLATIN
     Indication: Hepatoblastoma
     Route: 042
  2. EPIRUBICIN [Suspect]
     Active Substance: EPIRUBICIN
     Indication: Hepatoblastoma
     Route: 042

REACTIONS (3)
  - Chronic kidney disease [Unknown]
  - Bartter^s syndrome [Unknown]
  - Product use in unapproved indication [Unknown]
